FAERS Safety Report 11457990 (Version 1)
Quarter: 2015Q3

REPORT INFORMATION
  Report Type: Report from Study
  Country: CA (occurrence: CA)
  Receive Date: 20150904
  Receipt Date: 20150904
  Transmission Date: 20151125
  Serious: Yes (Hospitalization)
  Sender: FDA-Public Use
  Company Number: CA-BIOGENIDEC-2015BI119462

PATIENT
  Age: 58 Year
  Sex: Male

DRUGS (1)
  1. TYSABRI [Suspect]
     Active Substance: NATALIZUMAB
     Indication: MULTIPLE SCLEROSIS
     Route: 042
     Dates: start: 20090218

REACTIONS (8)
  - Sensory loss [Recovered/Resolved]
  - Fall [Recovered/Resolved]
  - Renal haemorrhage [Recovered/Resolved]
  - Joint dislocation [Recovered/Resolved]
  - Concussion [Not Recovered/Not Resolved]
  - Headache [Recovered/Resolved]
  - Renal disorder [Not Recovered/Not Resolved]
  - Head injury [Recovered/Resolved]

NARRATIVE: CASE EVENT DATE: 20150807
